FAERS Safety Report 9746020 (Version 1)
Quarter: 2013Q4

REPORT INFORMATION
  Report Type: Spontaneous
  Country: GB (occurrence: None)
  Receive Date: 20131205
  Receipt Date: 20131205
  Transmission Date: 20140711
  Serious: Yes (Hospitalization)
  Sender: FDA-Public Use
  Company Number: AUR-APL-2013-09982

PATIENT
  Age: 79 Year
  Sex: Male

DRUGS (11)
  1. MIRTAZAPINE [Suspect]
     Indication: PRODUCT USED FOR UNKNOWN INDICATION
     Dates: start: 20131115
  2. BECLOMETASONE (BECLOMETASONE) [Concomitant]
  3. BETAMETHASONE SODIUM PHOSPHATE(BETAMETHASONE SODIUP PHOSPHATE) [Concomitant]
  4. BETNESOL(BETAMETHASONE SODIUM PHOSPHATE) [Concomitant]
  5. CITALOPRAM(CITALOPRAM) [Concomitant]
  6. DOXYCYCLINE(DOXYCYCLINE) [Concomitant]
  7. LAXIDO(ELECTROLYTES NOS W/MACROGOL 3350) [Concomitant]
  8. OMEPRAZOLE(OMEPRAZOLE) [Concomitant]
  9. PREDNISOLONE(PREDNISOLONE) [Concomitant]
  10. TERAZOSIN(TERAZOSIN) [Concomitant]
  11. ZOPICLONE(ZOPICLONE) [Concomitant]

REACTIONS (1)
  - Anaphylactic reaction [None]
